FAERS Safety Report 18338658 (Version 2)
Quarter: 2020Q4

REPORT INFORMATION
  Report Type: Report from Study
  Country: PA (occurrence: PA)
  Receive Date: 20201002
  Receipt Date: 20201017
  Transmission Date: 20210113
  Serious: No
  Sender: FDA-Public Use
  Company Number: NVSC2020PA263859

PATIENT
  Age: 84 Year
  Sex: Female

DRUGS (6)
  1. IVABRADINE [Concomitant]
     Active Substance: IVABRADINE
     Indication: INFARCTION
     Dosage: UNK
     Route: 065
     Dates: end: 202009
  2. CARVEDILOL. [Suspect]
     Active Substance: CARVEDILOL
     Indication: CARDIAC FAILURE
  3. IVABRADINE [Concomitant]
     Active Substance: IVABRADINE
     Indication: CARDIAC FAILURE
  4. SPIRONOLACTONE. [Concomitant]
     Active Substance: SPIRONOLACTONE
     Indication: CARDIAC FAILURE
  5. SPIRONOLACTONE. [Concomitant]
     Active Substance: SPIRONOLACTONE
     Indication: INFARCTION
     Dosage: UNK
     Route: 065
     Dates: end: 202009
  6. CARVEDILOL. [Suspect]
     Active Substance: CARVEDILOL
     Indication: INFARCTION
     Dosage: UNK
     Route: 065
     Dates: end: 202009

REACTIONS (2)
  - Cardiac disorder [Unknown]
  - Heart rate decreased [Recovering/Resolving]
